FAERS Safety Report 4383759-1 (Version None)
Quarter: 2004Q2

REPORT INFORMATION
  Report Type: 
  Country: None (occurrence: None)
  Receive Date: 20040608
  Receipt Date: 20030703
  Transmission Date: 20050107
  Serious: Yes (Other)
  Sender: FDA-Public Use
  Company Number: 200312285BCC

PATIENT
  Age: 34 Year
  Sex: Female
  Weight: 95.2554 kg

DRUGS (2)
  1. ALEVE [Suspect]
     Indication: TOOTHACHE
     Dosage: 440 MG, QD, ORAL
     Dates: start: 20030415
  2. ALEVE [Suspect]
     Dosage: 440 MG, QD, ORAL
     Route: 048
     Dates: start: 20030701

REACTIONS (1)
  - BLOOD URINE [None]
